FAERS Safety Report 5840878-8 (Version None)
Quarter: 2008Q3

REPORT INFORMATION
  Report Type: 
  Country: None (occurrence: None)
  Receive Date: 20080811
  Receipt Date: 20080722
  Transmission Date: 20090109
  Serious: No
  Sender: FDA-Public Use
  Company Number: US-BOEHRINGER INGELHEIM GMBH, GERMANY-2008-BP-11545BP

PATIENT
  Age: 74 Year
  Sex: Male

DRUGS (8)
  1. FLOMAX [Suspect]
     Indication: BENIGN PROSTATIC HYPERPLASIA
     Route: 048
     Dates: start: 20070901
  2. TEKTURNA [Concomitant]
     Indication: HYPERTENSION
  3. TOPROL-XL [Concomitant]
     Indication: HYPERTENSION
  4. NORVASC [Concomitant]
     Indication: HYPERTENSION
  5. ATIVAN [Concomitant]
     Indication: ANXIETY
  6. AMBIEN [Concomitant]
     Indication: SLEEP DISORDER THERAPY
  7. EFFEXOR [Concomitant]
     Indication: DEPRESSION
  8. AMITRIPTYLINE HCL [Concomitant]
     Indication: DEPRESSION

REACTIONS (2)
  - CHILLS [None]
  - HYPERHIDROSIS [None]
